FAERS Safety Report 4971048-3 (Version None)
Quarter: 2006Q2

REPORT INFORMATION
  Report Type: 
  Country: None (occurrence: None)
  Receive Date: 20060411
  Receipt Date: 20060411
  Transmission Date: 20061013
  Serious: No
  Sender: FDA-Public Use
  Company Number: None

PATIENT
  Age: 61 Year
  Sex: Male

DRUGS (9)
  1. PHENYTOIN [Suspect]
     Indication: CONVULSION
     Dosage: 200 BID PO
     Route: 048
     Dates: start: 20041020, end: 20060118
  2. ACETAMINOPHEN [Concomitant]
  3. ASCORBIC ACID [Concomitant]
  4. ASPIRIN [Concomitant]
  5. CYCLOBENZAPRINE HCL [Concomitant]
  6. METOPROLOL TARTRATE [Concomitant]
  7. SELENIUM SULFIDE [Concomitant]
  8. SODIUM CHLORIDE [Concomitant]
  9. SIMVASTATIN [Concomitant]

REACTIONS (4)
  - CONVULSION [None]
  - DIZZINESS [None]
  - FEELING ABNORMAL [None]
  - GAIT DISTURBANCE [None]
